FAERS Safety Report 7540997-4 (Version None)
Quarter: 2011Q2

REPORT INFORMATION
  Report Type: 
  Country: None (occurrence: None)
  Receive Date: 20110610
  Receipt Date: 20110608
  Transmission Date: 20111010
  Serious: Yes (Other)
  Sender: FDA-Public Use
  Company Number: US-ABBOTT-11P-163-0726847-00

PATIENT
  Sex: Female
  Weight: 124.85 kg

DRUGS (12)
  1. METOPROLOL [Concomitant]
     Indication: HEART RATE IRREGULAR
  2. FLECAINIDE ACETATE [Concomitant]
     Indication: HEART RATE IRREGULAR
  3. FOLIC ACID [Concomitant]
     Indication: VITAMIN SUPPLEMENTATION
  4. CALCIUM CARBONATE [Concomitant]
     Indication: MINERAL SUPPLEMENTATION
  5. ASCORBIC ACID [Concomitant]
     Indication: VITAMIN SUPPLEMENTATION
  6. TRIAMCINOLONE [Concomitant]
     Indication: PRODUCT USED FOR UNKNOWN INDICATION
     Dosage: QD/PRN
  7. HUMIRA [Suspect]
     Dates: start: 20110511
  8. SIMVASTATIN [Concomitant]
     Indication: BLOOD CHOLESTEROL INCREASED
  9. ASPIRIN [Concomitant]
     Indication: PRODUCT USED FOR UNKNOWN INDICATION
  10. HUMIRA [Suspect]
     Indication: PSORIASIS
     Dates: start: 20060101, end: 20060901
  11. MULTI-VITAMINS [Concomitant]
     Indication: VITAMIN SUPPLEMENTATION
  12. TOPICORT [Concomitant]
     Indication: PRODUCT USED FOR UNKNOWN INDICATION
     Dosage: QD/PRN

REACTIONS (3)
  - VISION BLURRED [None]
  - BUNION [None]
  - FEELING ABNORMAL [None]
